FAERS Safety Report 7809752-1 (Version None)
Quarter: 2011Q4

REPORT INFORMATION
  Report Type: 
  Country: None (occurrence: None)
  Receive Date: 20111012
  Receipt Date: 20111007
  Transmission Date: 20120403
  Serious: Yes (Death, Life-Threatening, Hospitalization, Other)
  Sender: FDA-Public Use
  Company Number: GB-ELI_LILLY_AND_COMPANY-GB201109000925

PATIENT
  Sex: Female
  Weight: 58.6 kg

DRUGS (11)
  1. FOLIC ACID [Concomitant]
     Dosage: 400 MG, UNK
     Route: 048
     Dates: start: 20110815, end: 20110909
  2. DALTEPARIN SODIUM [Concomitant]
     Indication: PULMONARY EMBOLISM
     Dosage: 12500 UNK, UNK
  3. BENDROFLUAZIDE [Concomitant]
  4. LIPITOR [Concomitant]
  5. ALIMTA [Suspect]
     Indication: LUNG ADENOCARCINOMA STAGE IV
     Dosage: 775 MG, UNKNOWN
     Route: 042
     Dates: start: 20110822, end: 20110909
  6. CISPLATIN [Concomitant]
     Indication: LUNG ADENOCARCINOMA STAGE IV
     Dosage: 79 MG, UNK
  7. DEXAMETHASONE [Concomitant]
     Dosage: 4 MG, BID
     Route: 048
     Dates: start: 20110821
  8. ATENOLOL [Concomitant]
  9. PROCHLORPERAZINE [Concomitant]
     Dosage: UNK, PRN
  10. VITAMIN B-12 [Concomitant]
     Dosage: 1000 UNK, UNK
     Route: 030
     Dates: start: 20110815, end: 20110909
  11. ALENDRONIC ACID [Concomitant]

REACTIONS (7)
  - DIARRHOEA [None]
  - ATRIAL FIBRILLATION [None]
  - HEMIPLEGIA [None]
  - HEMIANOPIA [None]
  - DYSARTHRIA [None]
  - HEMISENSORY NEGLECT [None]
  - CEREBROVASCULAR ACCIDENT [None]
